FAERS Safety Report 7369020-1 (Version None)
Quarter: 2011Q1

REPORT INFORMATION
  Report Type: 
  Country: None (occurrence: None)
  Receive Date: 20110314
  Receipt Date: 20110228
  Transmission Date: 20110831
  Serious: Yes (Other)
  Sender: FDA-Public Use
  Company Number: DSJ-2011-04442

PATIENT
  Age: 9 Decade
  Sex: Female

DRUGS (11)
  1. CALCIUM [Concomitant]
  2. AMLODIPINE BESYLATE AND OLMESARTAN MEDOXOMIL [Suspect]
     Indication: HYPERTENSION
     Dosage: 40/5 MG (1 IN 1 D),PER ORAL; 40/10 MG (2 IN 1 D),PER ORAL
     Route: 048
     Dates: start: 20101001, end: 20110125
  3. AMLODIPINE BESYLATE AND OLMESARTAN MEDOXOMIL [Suspect]
     Indication: HYPERTENSION
     Dosage: 40/5 MG (1 IN 1 D),PER ORAL; 40/10 MG (2 IN 1 D),PER ORAL
     Route: 048
     Dates: start: 20110126
  4. INDAPAMIDE [Concomitant]
  5. CLONAZEPAM [Concomitant]
  6. NEBIVOLOL HCL [Suspect]
  7. SIMVASTATIN [Concomitant]
  8. LEVOTHYROXINE SODIUM [Suspect]
  9. RAMIPRIL/HYDROCHLOROTHIAZIDE [Suspect]
  10. ETORICOXIB [Suspect]
  11. PIRACETAM [Suspect]

REACTIONS (6)
  - HEADACHE [None]
  - DRUG INEFFECTIVE [None]
  - PALLOR [None]
  - BLOOD PRESSURE INCREASED [None]
  - PAIN IN EXTREMITY [None]
  - VISION BLURRED [None]
